FAERS Safety Report 17528392 (Version 2)
Quarter: 2020Q1

REPORT INFORMATION
  Report Type: Spontaneous
  Country: GB (occurrence: GB)
  Receive Date: 20200311
  Receipt Date: 20200324
  Transmission Date: 20200409
  Serious: Yes (Death)
  Sender: FDA-Public Use
  Company Number: GB-ITALFARMACO SPA-2081516

PATIENT
  Age: 41 Year
  Sex: Male

DRUGS (1)
  1. RILUZOLE. [Suspect]
     Active Substance: RILUZOLE

REACTIONS (1)
  - Death [Fatal]

NARRATIVE: CASE EVENT DATE: 20200209
